FAERS Safety Report 21504616 (Version 1)
Quarter: 2022Q4

REPORT INFORMATION
  Report Type: Spontaneous
  Country: US (occurrence: US)
  Receive Date: 20221025
  Receipt Date: 20221025
  Transmission Date: 20230113
  Serious: No
  Sender: FDA-Public Use
  Company Number: US-JUBILANT CADISTA PHARMACEUTICALS INC.-2022JUB00206

PATIENT
  Sex: Female

DRUGS (3)
  1. LOSARTAN POTASSIUM AND HYDROCHLOROTHIAZIDE [Suspect]
     Active Substance: HYDROCHLOROTHIAZIDE\LOSARTAN POTASSIUM
     Indication: Hypertension
     Dosage: UNK, 1X/DAY IN THE MORNING
     Route: 048
     Dates: start: 20220611, end: 202207
  2. HYDROCHLOROTHIAZIDE\LOSARTAN POTASSIUM [Suspect]
     Active Substance: HYDROCHLOROTHIAZIDE\LOSARTAN POTASSIUM
     Indication: Hypertension
     Dosage: UNK, 1X/DAY IN THE MORNING
     Route: 048
     Dates: start: 20220611, end: 202207
  3. LOSARTAN POTASSIUM AND HYDROCHLOROTHIAZIDE [Suspect]
     Active Substance: HYDROCHLOROTHIAZIDE\LOSARTAN POTASSIUM
     Indication: Hypertension
     Dosage: UNK, 1X/DAY IN THE MORNING
     Route: 048
     Dates: start: 20220611, end: 202207

REACTIONS (3)
  - Peripheral swelling [Recovering/Resolving]
  - Micturition frequency decreased [Recovering/Resolving]
  - Product commingling [Recovered/Resolved]

NARRATIVE: CASE EVENT DATE: 20220601
